FAERS Safety Report 6648777-9 (Version None)
Quarter: 2010Q1

REPORT INFORMATION
  Report Type: 
  Country: None (occurrence: None)
  Receive Date: 20100324
  Receipt Date: 20100201
  Transmission Date: 20100710
  Serious: Yes (Hospitalization, Other)
  Sender: FDA-Public Use
  Company Number: PHHY2010CN13809

PATIENT
  Age: 42 Year
  Sex: Female

DRUGS (3)
  1. VOLTAREN [Suspect]
  2. SISOMICIN [Concomitant]
  3. CLINDAMYCIN [Concomitant]

REACTIONS (20)
  - ASPARTATE AMINOTRANSFERASE INCREASED [None]
  - BLOOD GLUCOSE DECREASED [None]
  - BLOOD PRESSURE DECREASED [None]
  - CHILLS [None]
  - DRUG RASH WITH EOSINOPHILIA AND SYSTEMIC SYMPTOMS [None]
  - ECCHYMOSIS [None]
  - FACIAL PAIN [None]
  - FIBRIN D DIMER INCREASED [None]
  - HEADACHE [None]
  - LYMPHADENOPATHY [None]
  - OEDEMA [None]
  - OEDEMA PERIPHERAL [None]
  - PAIN IN EXTREMITY [None]
  - PETECHIAE [None]
  - PLEURAL EFFUSION [None]
  - PROTHROMBIN TIME PROLONGED [None]
  - PROTHROMBIN TIME SHORTENED [None]
  - PYREXIA [None]
  - RASH [None]
  - SWELLING FACE [None]
